FAERS Safety Report 8239704-1 (Version None)
Quarter: 2012Q1

REPORT INFORMATION
  Report Type: 
  Country: None (occurrence: None)
  Receive Date: 20120328
  Receipt Date: 20120305
  Transmission Date: 20120608
  Serious: Yes (Other)
  Sender: FDA-Public Use
  Company Number: PHEH2012US005675

PATIENT
  Sex: Male

DRUGS (4)
  1. TEGRETOL [Suspect]
     Indication: EPILEPSY
     Dosage: UNK
  2. LEVOCETIRIZINE DIHYDROCHLORIDE [Concomitant]
     Indication: HYPERSENSITIVITY
  3. DEPAKOTE [Suspect]
     Indication: EPILEPSY
     Dosage: UNK
     Dates: start: 19900101
  4. ETHOTOIN [Concomitant]
     Indication: EPILEPSY

REACTIONS (4)
  - MEMORY IMPAIRMENT [None]
  - MOOD SWINGS [None]
  - HEADACHE [None]
  - AMNESIA [None]
